FAERS Safety Report 4271510-5 (Version None)
Quarter: 2004Q1

REPORT INFORMATION
  Report Type: 
  Country: None (occurrence: None)
  Receive Date: 20040113
  Receipt Date: 20040106
  Transmission Date: 20041129
  Serious: No
  Sender: FDA-Public Use
  Company Number: 2003UW16208

PATIENT
  Age: 56 Year
  Sex: Female
  Weight: 94.8018 kg

DRUGS (5)
  1. ARIMIDEX [Suspect]
     Indication: BREAST CANCER
     Dosage: 1 MG QD PO
     Route: 048
     Dates: start: 20030711, end: 20031204
  2. SYNTHROID [Concomitant]
  3. SARAFEM [Concomitant]
  4. ALEVE [Concomitant]
  5. THYROID TAB [Concomitant]

REACTIONS (6)
  - HYPOAESTHESIA [None]
  - JOINT STIFFNESS [None]
  - JOINT SWELLING [None]
  - PAIN IN EXTREMITY [None]
  - PARAESTHESIA [None]
  - WEIGHT INCREASED [None]
